FAERS Safety Report 9501108 (Version 1)
Quarter: 2013Q1

REPORT INFORMATION
  Report Type: Spontaneous
  Country: US (occurrence: None)
  Receive Date: 20130107
  Receipt Date: 20130107
  Transmission Date: 20140127
  Serious: No
  Sender: FDA-Public Use
  Company Number: PHEH2012US017733

PATIENT
  Age: 66 Year
  Sex: Female

DRUGS (1)
  1. GILENYA [Suspect]
     Route: 048
     Dates: start: 20110104

REACTIONS (6)
  - Abasia [None]
  - Vitamin D decreased [None]
  - Fatigue [None]
  - Pain [None]
  - Cough [None]
  - Asthenia [None]
